FAERS Safety Report 18984304 (Version 5)
Quarter: 2021Q3

REPORT INFORMATION
  Report Type: Spontaneous
  Country: CA (occurrence: CA)
  Receive Date: 20210309
  Receipt Date: 20210821
  Transmission Date: 20211014
  Serious: Yes (Other)
  Sender: FDA-Public Use
  Company Number: CA-CELLTRION INC.-2020CA023261

PATIENT

DRUGS (17)
  1. INFLECTRA [Suspect]
     Active Substance: INFLIXIMAB-DYYB
     Indication: CROHN^S DISEASE
     Dosage: 10 MG/KG (600 MG), EVERY 0, 2, 6 AND THEN EVERY 4 WEEKS
     Route: 042
     Dates: start: 20200629, end: 20210329
  2. INFLECTRA [Suspect]
     Active Substance: INFLIXIMAB-DYYB
     Dosage: 10 MG/KG (600 MG) EVERY 0, 2, 6 AND THEN EVERY 4 WEEKS
     Route: 042
     Dates: start: 20200713, end: 20200713
  3. INFLECTRA [Suspect]
     Active Substance: INFLIXIMAB-DYYB
     Dosage: 10 MG/KG (600 MG), EVERY 0, 2, 6 AND THEN EVERY 4 WEEKS
     Route: 042
     Dates: start: 20210329, end: 20210329
  4. INFLECTRA [Suspect]
     Active Substance: INFLIXIMAB-DYYB
     Dosage: 800 MG, EVERY 4 WEEKS
     Route: 042
     Dates: start: 20210427, end: 20210427
  5. INFLECTRA [Suspect]
     Active Substance: INFLIXIMAB-DYYB
     Dosage: 10 MG/KG (600 MG), EVERY 0, 2, 6 AND THEN EVERY 4 WEEKS
     Route: 042
     Dates: start: 20201130, end: 20201130
  6. INFLECTRA [Suspect]
     Active Substance: INFLIXIMAB-DYYB
     Dosage: 10 MG/KG (600 MG), EVERY 0, 2, 6 AND THEN EVERY 4 WEEKS
     Route: 042
     Dates: start: 20201130, end: 20201130
  7. INFLECTRA [Suspect]
     Active Substance: INFLIXIMAB-DYYB
     Dosage: 800 MG, EVERY 4 WEEKS
     Route: 042
     Dates: start: 20210714, end: 20210714
  8. INFLECTRA [Suspect]
     Active Substance: INFLIXIMAB-DYYB
     Dosage: 10 MG/KG (600 MG), EVERY 0, 2, 6 AND THEN EVERY 4 WEEKS
     Route: 042
     Dates: start: 20200908, end: 20200908
  9. CIPROFLOXACIN. [Concomitant]
     Active Substance: CIPROFLOXACIN
     Dosage: 1 DF,DOSAGE INFORMATION NOT AVAILABLE
     Route: 065
  10. INFLECTRA [Suspect]
     Active Substance: INFLIXIMAB-DYYB
     Dosage: 10 MG/KG (600 MG), EVERY 0, 2, 6 AND THEN EVERY 4 WEEKS
     Route: 042
     Dates: start: 20200713, end: 20200713
  11. INFLECTRA [Suspect]
     Active Substance: INFLIXIMAB-DYYB
     Dosage: 10 MG/KG (600 MG), EVERY 0, 2, 6 AND THEN EVERY 4 WEEKS
     Route: 042
     Dates: start: 20210222, end: 20210222
  12. INFLECTRA [Suspect]
     Active Substance: INFLIXIMAB-DYYB
     Dosage: 10 MG/KG (600 MG), EVERY 0, 2, 6 AND THEN EVERY 4 WEEKS
     Route: 042
     Dates: start: 20200810, end: 20200810
  13. INFLECTRA [Suspect]
     Active Substance: INFLIXIMAB-DYYB
     Dosage: 10 MG/KG (600 MG), EVERY 0, 2, 6 AND THEN EVERY 4 WEEKS
     Route: 042
     Dates: start: 20210125, end: 20210125
  14. INFLECTRA [Suspect]
     Active Substance: INFLIXIMAB-DYYB
     Dosage: 800 MG, EVERY 4 WEEKS
     Route: 042
     Dates: start: 20210609, end: 20210609
  15. INFLECTRA [Suspect]
     Active Substance: INFLIXIMAB-DYYB
     Dosage: 10 MG/KG (600 MG), EVERY 0, 2, 6 AND THEN EVERY 4 WEEKS
     Route: 042
     Dates: start: 20201029, end: 20201029
  16. CIPROFLOXACIN. [Concomitant]
     Active Substance: CIPROFLOXACIN
     Dosage: UNK
  17. INFLECTRA [Suspect]
     Active Substance: INFLIXIMAB-DYYB
     Dosage: 800 MG, EVERY 4 WEEKS
     Route: 042
     Dates: start: 20210811

REACTIONS (5)
  - Weight fluctuation [Unknown]
  - Inappropriate schedule of product administration [Unknown]
  - Off label use [Unknown]
  - Product use issue [Unknown]
  - Intentional product use issue [Unknown]

NARRATIVE: CASE EVENT DATE: 20200629
